FAERS Safety Report 7489831-1 (Version None)
Quarter: 2011Q2

REPORT INFORMATION
  Report Type: 
  Country: None (occurrence: None)
  Receive Date: 20110519
  Receipt Date: 20090522
  Transmission Date: 20111010
  Serious: No
  Sender: FDA-Public Use
  Company Number: 2009BI015733

PATIENT
  Sex: Male

DRUGS (2)
  1. BENADRYL [Concomitant]
     Indication: PREMEDICATION
  2. TYSABRI [Suspect]
     Indication: MULTIPLE SCLEROSIS
     Route: 042
     Dates: start: 20090521

REACTIONS (11)
  - MEMORY IMPAIRMENT [None]
  - SINUS HEADACHE [None]
  - MUSCULAR WEAKNESS [None]
  - DERMATITIS CONTACT [None]
  - PRURITUS GENERALISED [None]
  - GAIT DISTURBANCE [None]
  - DEPRESSION [None]
  - FATIGUE [None]
  - URTICARIA [None]
  - MULTIPLE SCLEROSIS [None]
  - RHINORRHOEA [None]
